FAERS Safety Report 6062458-4 (Version None)
Quarter: 2009Q1

REPORT INFORMATION
  Report Type: 
  Country: None (occurrence: None)
  Receive Date: 20090203
  Receipt Date: 20090123
  Transmission Date: 20090719
  Serious: Yes (Hospitalization)
  Sender: FDA-Public Use
  Company Number: JP-NOVOPROD-283572

PATIENT
  Age: 67 Year
  Sex: Male

DRUGS (1)
  1. NOVOLIN R [Suspect]
     Indication: TYPE 2 DIABETES MELLITUS
     Dosage: 28 IU, QD
     Route: 058

REACTIONS (3)
  - ACCIDENTAL OVERDOSE [None]
  - CHOREA [None]
  - HYPOGLYCAEMIA [None]
